FAERS Safety Report 10514360 (Version 1)
Quarter: 2014Q4

REPORT INFORMATION
  Report Type: Spontaneous
  Country: US (occurrence: US)
  Receive Date: 20141013
  Receipt Date: 20141013
  Transmission Date: 20150528
  Serious: No
  Sender: FDA-Public Use
  Company Number: US-BAYER-2014-148069

PATIENT
  Sex: Female

DRUGS (1)
  1. MIRENA [Suspect]
     Active Substance: LEVONORGESTREL
     Dosage: 20 MCG/24HR, CONT
     Route: 015
     Dates: start: 201407

REACTIONS (6)
  - Coital bleeding [None]
  - Abdominal pain upper [None]
  - Dyspareunia [None]
  - Dizziness [None]
  - Back pain [None]
  - Oedema peripheral [None]

NARRATIVE: CASE EVENT DATE: 201407
